FAERS Safety Report 6914945-1 (Version None)
Quarter: 2010Q3

REPORT INFORMATION
  Report Type: 
  Country: None (occurrence: None)
  Receive Date: 20100809
  Receipt Date: 20100805
  Transmission Date: 20110219
  Serious: Yes (Death)
  Sender: FDA-Public Use
  Company Number: PHHY2010NL51690

PATIENT
  Sex: Male

DRUGS (1)
  1. ZOMETA [Suspect]
     Dosage: 4MG/5ML
     Route: 042
     Dates: end: 20100629

REACTIONS (4)
  - BEDRIDDEN [None]
  - DECREASED APPETITE [None]
  - EUTHANASIA [None]
  - FATIGUE [None]
